FAERS Safety Report 8414796 (Version 2)
Quarter: 2014Q1

REPORT INFORMATION
  Report Type: Spontaneous
  Country: US (occurrence: US)
  Receive Date: 20120218
  Receipt Date: 20140205
  Transmission Date: 20141002
  Serious: No
  Sender: FDA-Public Use
  Company Number: US-ALLERGAN-1107086US

PATIENT
  Age: 66 Year
  Sex: Female

DRUGS (2)
  1. BOTOX COSMETIC [Suspect]
     Indication: SKIN WRINKLING
     Dosage: UNK
     Route: 030
     Dates: start: 201011, end: 201011
  2. BOTOX COSMETIC [Suspect]
     Indication: SKIN WRINKLING
     Dosage: 37.5 UNITS, SINGLE
     Route: 030
     Dates: start: 20130513, end: 20130513

REACTIONS (7)
  - Metamorphopsia [Not Recovered/Not Resolved]
  - Muscle twitching [Not Recovered/Not Resolved]
  - Swelling [Recovered/Resolved]
  - Eyelid sensory disorder [Not Recovered/Not Resolved]
  - Periorbital oedema [Unknown]
  - Facial paresis [Recovering/Resolving]
  - Injection site pain [Recovered/Resolved]
